FAERS Safety Report 9204747 (Version 2)
Quarter: 2014Q1

REPORT INFORMATION
  Report Type: Spontaneous
  Country: US (occurrence: US)
  Receive Date: 20130402
  Receipt Date: 20140129
  Transmission Date: 20141002
  Serious: Yes (Other)
  Sender: FDA-Public Use
  Company Number: US-BAYER-2013-039220

PATIENT
  Age: 30 Year
  Sex: Female
  Weight: 65.76 kg

DRUGS (10)
  1. YAZ [Suspect]
  2. YASMIN [Suspect]
  3. NAPROXEN [Concomitant]
  4. TYLENOL WITH CODEIN [CODEINE PHOSPHATE,PARACETAMOL] [Concomitant]
  5. SOMA [Concomitant]
  6. DONNATAL [Concomitant]
  7. LIDOCAINE [Concomitant]
  8. MYLANTA [CALCIUM CARBONATE] [Concomitant]
  9. AMOXICILLIN [Concomitant]
  10. PAXIL [Concomitant]

REACTIONS (5)
  - Cholecystectomy [None]
  - Injury [None]
  - Pain [None]
  - Cholecystitis [None]
  - Cholelithiasis [None]
